FAERS Safety Report 4463743-X (Version None)
Quarter: 2004Q3

REPORT INFORMATION
  Report Type: 
  Country: None (occurrence: None)
  Receive Date: 20040929
  Receipt Date: 20040914
  Transmission Date: 20050211
  Serious: Yes (Hospitalization)
  Sender: FDA-Public Use
  Company Number: FR_040904773

PATIENT
  Age: 53 Year
  Sex: Female

DRUGS (5)
  1. ZYPREXA [Suspect]
     Dosage: 10 MG/1 DAY
     Dates: start: 20040405, end: 20040508
  2. DEPAKOTE [Concomitant]
  3. LYSANXIA (PRAZEPAM) [Concomitant]
  4. LEVOTHYROX (LEVOTHYROXINE) [Concomitant]
  5. SURGESTRONE (PROMEGESTONE) [Concomitant]

REACTIONS (10)
  - AKINESIA [None]
  - BLOOD CREATINE PHOSPHOKINASE INCREASED [None]
  - DIFFICULTY IN WALKING [None]
  - EXTRAPYRAMIDAL DISORDER [None]
  - FALL [None]
  - HYPERTHERMIA [None]
  - HYPERTONIA [None]
  - NEUROLEPTIC MALIGNANT SYNDROME [None]
  - TREMOR [None]
  - URINARY TRACT INFECTION [None]
